FAERS Safety Report 8559605-9 (Version None)
Quarter: 2012Q2

REPORT INFORMATION
  Report Type: 
  Country: None (occurrence: None)
  Receive Date: 20120418
  Receipt Date: 20100521
  Transmission Date: 20120825
  Serious: Yes (Other)
  Sender: FDA-Public Use
  Company Number: PHEH2010US02549

PATIENT
  Age: 57 Year
  Sex: Female

DRUGS (2)
  1. RELPAX [Concomitant]
  2. DIOVAN [Suspect]
     Dosage: 40 MG

REACTIONS (3)
  - BLOOD PRESSURE INCREASED [None]
  - HEART RATE INCREASED [None]
  - CHEST DISCOMFORT [None]
